FAERS Safety Report 18385653 (Version 1)
Quarter: 2020Q4

REPORT INFORMATION
  Report Type: Spontaneous
  Country: FR (occurrence: FR)
  Receive Date: 20201015
  Receipt Date: 20201015
  Transmission Date: 20210114
  Serious: Yes (Other)
  Sender: FDA-Public Use
  Company Number: FR-ACCORD-204990

PATIENT
  Age: 66 Year
  Sex: Male
  Weight: 48 kg

DRUGS (4)
  1. XALATAN [Concomitant]
     Active Substance: LATANOPROST
     Dosage: STRENGTH: 0.005 PERCENT
  2. TEMESTA (LORAZEPAM) [Suspect]
     Active Substance: LORAZEPAM
     Indication: PRODUCT USED FOR UNKNOWN INDICATION
     Dosage: STRENGTH: 1 MG, SCORED TABLET
     Route: 048
     Dates: start: 20200903
  3. CANDESARTAN. [Concomitant]
     Active Substance: CANDESARTAN
  4. SERTRALINE [Suspect]
     Active Substance: SERTRALINE HYDROCHLORIDE
     Indication: DEPRESSION
     Route: 048
     Dates: start: 20200903, end: 20200909

REACTIONS (1)
  - Diplopia [Recovered/Resolved]

NARRATIVE: CASE EVENT DATE: 20200905
